FAERS Safety Report 10351289 (Version 2)
Quarter: 2015Q1

REPORT INFORMATION
  Report Type: Spontaneous
  Country: US (occurrence: US)
  Receive Date: 20140730
  Receipt Date: 20150123
  Transmission Date: 20150720
  Serious: Yes (Death, Life-Threatening, Hospitalization, Disabling, Other)
  Sender: FDA-Public Use
  Company Number: US-GLAXOSMITHKLINE-A1083089A

PATIENT
  Age: 48 Year
  Sex: Female
  Weight: 77.55 kg

DRUGS (9)
  1. VOTRIENT [Suspect]
     Active Substance: PAZOPANIB HYDROCHLORIDE
     Indication: SOFT TISSUE SARCOMA
     Dosage: 400 MG, QD
     Route: 065
     Dates: start: 201406, end: 201406
  2. HYDROCODONE + APAP [Concomitant]
  3. PRUNE JUICE [Concomitant]
  4. VOTRIENT [Suspect]
     Active Substance: PAZOPANIB HYDROCHLORIDE
     Indication: MALIGNANT CONNECTIVE TISSUE NEOPLASM
     Dosage: 800 MG, QD
     Route: 065
     Dates: start: 20140404
  5. OXYCONTIN [Concomitant]
     Active Substance: OXYCODONE HYDROCHLORIDE
  6. ONDANSETRON [Concomitant]
     Active Substance: ONDANSETRON
  7. COMPAZINE [Concomitant]
     Active Substance: PROCHLORPERAZINE MALEATE
  8. NORCO [Concomitant]
     Active Substance: ACETAMINOPHEN\HYDROCODONE BITARTRATE
  9. SENOKOT [Concomitant]
     Active Substance: SENNOSIDES

REACTIONS (21)
  - Weight increased [Unknown]
  - Anaemia [Unknown]
  - Atelectasis [Unknown]
  - Asthenia [Unknown]
  - Dizziness [Unknown]
  - Constipation [Unknown]
  - Gastrooesophageal reflux disease [Unknown]
  - Nausea [Unknown]
  - Coccydynia [Unknown]
  - Tachycardia [Unknown]
  - Dehydration [Unknown]
  - Vomiting [Unknown]
  - Groin pain [Unknown]
  - Urinary tract infection [Unknown]
  - Generalised oedema [Unknown]
  - Sarcoma metastatic [Fatal]
  - Decreased activity [Unknown]
  - Hospice care [Unknown]
  - Pallor [Unknown]
  - Oedema [Unknown]
  - Pleural effusion [Unknown]

NARRATIVE: CASE EVENT DATE: 2014
